FAERS Safety Report 5509098-0 (Version None)
Quarter: 2007Q4

REPORT INFORMATION
  Report Type: 
  Country: None (occurrence: None)
  Receive Date: 20071026
  Receipt Date: 20070711
  Transmission Date: 20080405
  Serious: Yes (Hospitalization)
  Sender: FDA-Public Use
  Company Number: CLOF-10599

PATIENT
  Age: 44 Year
  Sex: Female

DRUGS (2)
  1. CLOFARABINE. MFR: GENZYME [Suspect]
     Indication: NON-HODGKIN'S LYMPHOMA RECURRENT
     Dates: start: 20070423, end: 20070427
  2. CLOFARABINE. MFR: GENZYME [Suspect]
     Indication: NON-HODGKIN'S LYMPHOMA RECURRENT
     Dates: start: 20070501, end: 20070516

REACTIONS (1)
  - FEBRILE NEUTROPENIA [None]
